FAERS Safety Report 9683585 (Version 4)
Quarter: 2013Q4

REPORT INFORMATION
  Report Type: Report from Study
  Country: US (occurrence: US)
  Receive Date: 20131112
  Receipt Date: 20131223
  Transmission Date: 20140711
  Serious: No
  Sender: FDA-Public Use
  Company Number: US-VERTEX PHARMACEUTICALS INC-2013-010918

PATIENT
  Age: 55 Year
  Sex: Female
  Weight: 82 kg

DRUGS (8)
  1. VX-950 (TELAPREVIR) [Suspect]
     Indication: HEPATITIS C
     Dosage: 750 MG, TID
     Route: 048
     Dates: start: 20131101, end: 20131101
  2. VX-950 (TELAPREVIR) [Suspect]
     Dosage: 750 MG, QD
     Route: 048
     Dates: start: 20131104
  3. COPEGUS [Suspect]
     Indication: HEPATITIS C
     Dosage: 3 DF, BID
     Dates: start: 20131101, end: 20131101
  4. COPEGUS [Suspect]
     Dosage: 3 DF, BID
     Dates: start: 20131104
  5. PEGASYS [Suspect]
     Indication: HEPATITIS C
     Dosage: INJECTION, QW
     Route: 058
     Dates: start: 20131031, end: 20131101
  6. PEGASYS [Suspect]
     Dosage: INJECTION, QW
     Route: 058
     Dates: start: 20131104
  7. PANTOPRAZOLE [Concomitant]
     Dosage: UNK, PRN
  8. ADVAIR [Concomitant]
     Indication: DYSPNOEA
     Dosage: UNK, PRN

REACTIONS (21)
  - Sleep disorder [Recovered/Resolved]
  - Decreased appetite [Not Recovered/Not Resolved]
  - Hepatic pain [Not Recovered/Not Resolved]
  - Weight decreased [Not Recovered/Not Resolved]
  - Abdominal pain [Not Recovered/Not Resolved]
  - Back pain [Not Recovered/Not Resolved]
  - Headache [Not Recovered/Not Resolved]
  - Dizziness [Not Recovered/Not Resolved]
  - Alopecia [Unknown]
  - Feeling hot [Unknown]
  - Yellow skin [Unknown]
  - Swelling [Recovered/Resolved]
  - Fatigue [Not Recovered/Not Resolved]
  - Asthenia [Not Recovered/Not Resolved]
  - Rash pruritic [Recovered/Resolved]
  - Anorectal discomfort [Not Recovered/Not Resolved]
  - Vomiting [Recovered/Resolved]
  - Diarrhoea [Recovered/Resolved]
  - Anaemia [Unknown]
  - Pruritus [Recovered/Resolved]
  - Haemorrhoids [Recovered/Resolved]
